FAERS Safety Report 20762959 (Version 1)
Quarter: 2022Q2

REPORT INFORMATION
  Report Type: Other
  Country: DE (occurrence: None)
  Receive Date: 20220428
  Receipt Date: 20220428
  Transmission Date: 20220720
  Serious: No
  Sender: FDA-Public Use
  Company Number: DE-ROCHE-3084627

PATIENT
  Age: 51 Year
  Sex: Female
  Weight: 65 kg

DRUGS (27)
  1. OCRELIZUMAB [Suspect]
     Active Substance: OCRELIZUMAB
     Indication: Relapsing multiple sclerosis
     Route: 042
     Dates: start: 20180615, end: 20180629
  2. OCRELIZUMAB [Suspect]
     Active Substance: OCRELIZUMAB
     Route: 042
     Dates: start: 20181207
  3. RANITIDINE [Concomitant]
     Active Substance: RANITIDINE
     Route: 048
     Dates: start: 20180614, end: 20180616
  4. RANITIDINE [Concomitant]
     Active Substance: RANITIDINE
     Route: 048
     Dates: start: 20181206, end: 20181208
  5. RANITIDINE [Concomitant]
     Active Substance: RANITIDINE
     Route: 048
     Dates: start: 20180628, end: 20180630
  6. RANITIDINE [Concomitant]
     Active Substance: RANITIDINE
     Route: 048
     Dates: start: 20190523, end: 20190525
  7. PREDNISOLONE [Concomitant]
     Active Substance: PREDNISOLONE
     Route: 042
     Dates: start: 20190524, end: 20190524
  8. PREDNISOLONE [Concomitant]
     Active Substance: PREDNISOLONE
     Route: 042
     Dates: start: 20180615, end: 20180615
  9. PREDNISOLONE [Concomitant]
     Active Substance: PREDNISOLONE
     Route: 042
     Dates: start: 20180629, end: 20180629
  10. PREDNISOLONE [Concomitant]
     Active Substance: PREDNISOLONE
     Route: 042
     Dates: start: 20181207, end: 20181207
  11. PREGABALIN [Concomitant]
     Active Substance: PREGABALIN
     Indication: Hypoaesthesia
     Route: 048
     Dates: start: 20181012
  12. DOXYCYCLINE [Concomitant]
     Active Substance: DOXYCYCLINE
     Indication: Pulpitis dental
     Route: 048
     Dates: start: 20200730, end: 20200805
  13. VENLAFAXINE [Concomitant]
     Active Substance: VENLAFAXINE HYDROCHLORIDE
     Indication: Depression
     Route: 048
  14. METHYLPREDNISOLONE [Concomitant]
     Active Substance: METHYLPREDNISOLONE
     Indication: Multiple sclerosis relapse
     Route: 042
     Dates: start: 20180803, end: 20180806
  15. EBASTINE [Concomitant]
     Active Substance: EBASTINE
     Route: 048
     Dates: start: 20180614, end: 20180616
  16. EBASTINE [Concomitant]
     Active Substance: EBASTINE
     Route: 048
     Dates: start: 20190523, end: 20190525
  17. EBASTINE [Concomitant]
     Active Substance: EBASTINE
     Route: 048
     Dates: start: 20181206, end: 20181208
  18. EBASTINE [Concomitant]
     Active Substance: EBASTINE
     Route: 048
     Dates: start: 20180628, end: 20180630
  19. PREDNISOLONE [Concomitant]
     Active Substance: PREDNISOLONE
     Route: 042
     Dates: start: 20210416
  20. BIONTECH-BOOSTER COVID-19 VACCINE [Concomitant]
     Indication: COVID-19 prophylaxis
     Route: 030
     Dates: start: 20210824, end: 20210824
  21. MIRTAZAPINE [Concomitant]
     Active Substance: MIRTAZAPINE
     Indication: Depression
     Route: 048
     Dates: start: 20180712, end: 20180803
  22. MIRTAZAPINE [Concomitant]
     Active Substance: MIRTAZAPINE
     Route: 048
     Dates: start: 20180803
  23. CHOLECALCIFEROL [Concomitant]
     Active Substance: CHOLECALCIFEROL
     Indication: Vitamin D deficiency
     Dates: end: 202002
  24. CHOLECALCIFEROL [Concomitant]
     Active Substance: CHOLECALCIFEROL
     Route: 048
     Dates: start: 202002
  25. IBUPROFEN [Concomitant]
     Active Substance: IBUPROFEN
     Indication: Toothache
     Dates: start: 202008
  26. IBUPROFEN [Concomitant]
     Active Substance: IBUPROFEN
     Indication: Multiple sclerosis relapse prophylaxis
     Route: 048
     Dates: start: 20210416
  27. IBUPROFEN [Concomitant]
     Active Substance: IBUPROFEN
     Route: 048
     Dates: start: 20150502

REACTIONS (1)
  - COVID-19 [Recovering/Resolving]

NARRATIVE: CASE EVENT DATE: 20220411
